FAERS Safety Report 8581964-1 (Version None)
Quarter: 2012Q3

REPORT INFORMATION
  Report Type: 
  Country: None (occurrence: None)
  Receive Date: 20120809
  Receipt Date: 20120731
  Transmission Date: 20120928
  Serious: Yes (Other)
  Sender: FDA-Public Use
  Company Number: US-ASTRAZENECA-2011SE26914

PATIENT
  Age: 52 Year
  Sex: Male

DRUGS (3)
  1. NEXIUM [Suspect]
     Route: 048
  2. SEROQUEL [Suspect]
     Route: 048
  3. SYMBICORT [Suspect]
     Route: 055

REACTIONS (17)
  - DIABETIC COMPLICATION [None]
  - ASTHMA [None]
  - SCHIZOPHRENIA [None]
  - SLEEP APNOEA SYNDROME [None]
  - NARCOLEPSY [None]
  - OSTEOARTHRITIS [None]
  - ANAEMIA [None]
  - HIATUS HERNIA [None]
  - DIABETIC NEUROPATHY [None]
  - ANXIETY [None]
  - HYPERSOMNIA [None]
  - INTERVERTEBRAL DISC PROTRUSION [None]
  - RENAL FAILURE CHRONIC [None]
  - SPINAL COLUMN STENOSIS [None]
  - DIABETES MELLITUS [None]
  - NEURALGIA [None]
  - NERVE INJURY [None]
